FAERS Safety Report 9859335 (Version 1)
Quarter: 2014Q1

REPORT INFORMATION
  Report Type: Spontaneous
  Country: US (occurrence: US)
  Receive Date: 20140131
  Receipt Date: 20140131
  Transmission Date: 20141002
  Serious: No
  Sender: FDA-Public Use
  Company Number: US-PFIZER INC-2014029595

PATIENT
  Age: 40 Year
  Sex: Female
  Weight: 91.61 kg

DRUGS (4)
  1. LYRICA [Suspect]
     Indication: FIBROMYALGIA
     Dosage: UNK
     Dates: start: 2013
  2. LYRICA [Suspect]
     Dosage: UNK,2XDAY
  3. PRISTIQ [Concomitant]
     Indication: DEPRESSION
     Dosage: 150 MG, 1X/DAY
  4. YAZ [Concomitant]
     Indication: PREMENSTRUAL SYNDROME
     Dosage: UNK

REACTIONS (1)
  - Drug ineffective [Unknown]
